FAERS Safety Report 21638398 (Version 2)
Quarter: 2023Q2

REPORT INFORMATION
  Report Type: Spontaneous
  Country: DE (occurrence: DE)
  Receive Date: 20221124
  Receipt Date: 20230419
  Transmission Date: 20230721
  Serious: No
  Sender: FDA-Public Use
  Company Number: DE-ROCHE-3218422

PATIENT
  Sex: Female

DRUGS (8)
  1. BENDAMUSTINE HYDROCHLORIDE [Suspect]
     Active Substance: BENDAMUSTINE HYDROCHLORIDE
     Indication: Diffuse large B-cell lymphoma
     Dosage: THIRD LINE WITH RITUXIMAB AND POLATUZUMAB
     Route: 065
     Dates: start: 20220715, end: 20220717
  2. GEMFIBROZIL [Suspect]
     Active Substance: GEMFIBROZIL
     Indication: Diffuse large B-cell lymphoma
     Dosage: SECOND LINE WITH RITUXIMAB AND TAFASITAMAB
     Route: 065
     Dates: start: 20220118, end: 20220513
  3. MABTHERA [Suspect]
     Active Substance: RITUXIMAB
     Indication: Diffuse large B-cell lymphoma
     Dosage: THIRD LINE WITH POLATUZUMAB AND BENDAMUSTINE
     Route: 065
     Dates: start: 20220715, end: 20220717
  4. MABTHERA [Suspect]
     Active Substance: RITUXIMAB
     Dosage: SECOND LINE WITH GEMOX AND TAFASITAMAB
     Route: 065
     Dates: start: 20220118, end: 20220513
  5. MABTHERA [Suspect]
     Active Substance: RITUXIMAB
     Dosage: FIRST LINE WITH CHOP
     Route: 065
     Dates: start: 20210208, end: 20210705
  6. POLIVY [Suspect]
     Active Substance: POLATUZUMAB VEDOTIN-PIIQ
     Indication: Diffuse large B-cell lymphoma
     Dosage: THIRD LINE WITH RITUXIMAB AND BENDAMUSTINE
     Route: 065
     Dates: start: 20220715, end: 20220717
  7. CYCLOPHOSPHAMIDE\DOXORUBICIN\PREDNISONE\VINCRISTINE [Suspect]
     Active Substance: CYCLOPHOSPHAMIDE\DOXORUBICIN\PREDNISONE\VINCRISTINE
     Indication: Diffuse large B-cell lymphoma
     Dosage: FIRST LINE WITH RITUXIMAB
     Route: 065
     Dates: start: 20210208, end: 20210705
  8. TAFASITAMAB-CXIX [Suspect]
     Active Substance: TAFASITAMAB-CXIX
     Indication: Diffuse large B-cell lymphoma
     Dosage: SECOND LINE WITH RITUXIMAB AND GEMOX
     Route: 065
     Dates: start: 20220118, end: 20220513

REACTIONS (1)
  - Neoplasm progression [Not Recovered/Not Resolved]
